FAERS Safety Report 18267105 (Version 2)
Quarter: 2020Q3

REPORT INFORMATION
  Report Type: Spontaneous
  Country: US (occurrence: US)
  Receive Date: 20200915
  Receipt Date: 20200930
  Transmission Date: 20201103
  Serious: Yes (Life-Threatening, Hospitalization)
  Sender: FDA-Public Use
  Company Number: US-JNJFOC-20200909196

PATIENT
  Age: 35 Year
  Sex: Male

DRUGS (9)
  1. SPORANOX [Suspect]
     Active Substance: ITRACONAZOLE
     Indication: COCCIDIOIDOMYCOSIS
     Route: 065
  2. AZITHROMYCIN ANHYDROUS. [Suspect]
     Active Substance: AZITHROMYCIN ANHYDROUS
     Indication: PNEUMONIA
  3. CEFTRIAXONE. [Suspect]
     Active Substance: CEFTRIAXONE
     Indication: DISSEMINATED COCCIDIOIDOMYCOSIS
  4. FLUCONAZOLE. [Suspect]
     Active Substance: FLUCONAZOLE
     Indication: DISSEMINATED COCCIDIOIDOMYCOSIS
  5. CEFTRIAXONE. [Suspect]
     Active Substance: CEFTRIAXONE
     Indication: PNEUMONIA
  6. FLUCONAZOLE. [Suspect]
     Active Substance: FLUCONAZOLE
     Indication: INFECTION
     Dosage: 400 MG, DAILY,1?MONTH COURSE
     Route: 048
  7. FLUCONAZOLE. [Suspect]
     Active Substance: FLUCONAZOLE
     Indication: COCCIDIOIDOMYCOSIS
  8. AMPHOTERICIN B, LIPOSOME [Suspect]
     Active Substance: AMPHOTERICIN B
     Indication: DISSEMINATED COCCIDIOIDOMYCOSIS
  9. AZITHROMYCIN ANHYDROUS. [Suspect]
     Active Substance: AZITHROMYCIN ANHYDROUS
     Indication: DISSEMINATED COCCIDIOIDOMYCOSIS

REACTIONS (4)
  - Acute respiratory distress syndrome [Recovering/Resolving]
  - Product used for unknown indication [Unknown]
  - Drug ineffective [Unknown]
  - Off label use [Unknown]
